FAERS Safety Report 24689240 (Version 2)
Quarter: 2024Q4

REPORT INFORMATION
  Report Type: Spontaneous
  Country: JP (occurrence: JP)
  Receive Date: 20241203
  Receipt Date: 20241210
  Transmission Date: 20250114
  Serious: Yes (Hospitalization, Other)
  Sender: ALEXION PHARMACEUTICALS
  Company Number: JP-ASTRAZENECA-240135027_064320_P_1

PATIENT
  Age: 86 Year

DRUGS (10)
  1. ANDEXXA [Suspect]
     Active Substance: ANDEXANET ALFA
     Indication: Subdural haematoma
     Dosage: 1760 MILLIGRAM
  2. ANDEXXA [Suspect]
     Active Substance: ANDEXANET ALFA
     Dosage: 1760 MILLIGRAM
     Route: 042
  3. ANDEXXA [Suspect]
     Active Substance: ANDEXANET ALFA
     Dosage: 1760 MILLIGRAM
  4. ANDEXXA [Suspect]
     Active Substance: ANDEXANET ALFA
     Dosage: 1760 MILLIGRAM
     Route: 042
  5. RIVAROXABAN [Concomitant]
     Active Substance: RIVAROXABAN
     Indication: Atrial fibrillation
     Dosage: DOSE UNKNOWN
  6. RIVAROXABAN [Concomitant]
     Active Substance: RIVAROXABAN
     Dosage: DOSE UNKNOWN
     Route: 048
  7. RIVAROXABAN [Concomitant]
     Active Substance: RIVAROXABAN
     Dosage: DOSE UNKNOWN
     Route: 048
  8. RIVAROXABAN [Concomitant]
     Active Substance: RIVAROXABAN
     Dosage: DOSE UNKNOWN
  9. RIVAROXABAN [Concomitant]
     Active Substance: RIVAROXABAN
     Dosage: DOSE UNKNOWN
     Route: 048
  10. RIVAROXABAN [Concomitant]
     Active Substance: RIVAROXABAN
     Dosage: DOSE UNKNOWN

REACTIONS (1)
  - Cerebral infarction [Not Recovered/Not Resolved]
